FAERS Safety Report 25006715 (Version 1)
Quarter: 2025Q1

REPORT INFORMATION
  Report Type: Spontaneous
  Country: BR (occurrence: BR)
  Receive Date: 20250225
  Receipt Date: 20250225
  Transmission Date: 20250408
  Serious: Yes (Other)
  Sender: AMGEN
  Company Number: BR-AMGEN-BRASP2025035378

PATIENT

DRUGS (1)
  1. RITUXIMAB [Suspect]
     Active Substance: RITUXIMAB
     Indication: Immunosuppressant drug therapy
     Route: 065

REACTIONS (6)
  - Glomerulonephropathy [Unknown]
  - End stage renal disease [Unknown]
  - Neoplasm [Unknown]
  - Therapy partial responder [Unknown]
  - Therapy non-responder [Unknown]
  - Off label use [Unknown]
